FAERS Safety Report 4733735-1 (Version None)
Quarter: 2005Q3

REPORT INFORMATION
  Report Type: 
  Country: None (occurrence: None)
  Receive Date: 20050729
  Receipt Date: 20050712
  Transmission Date: 20060218
  Serious: Yes (Other)
  Sender: FDA-Public Use
  Company Number: 2005-BP-12063RO

PATIENT

DRUGS (2)
  1. METHOTREXATE [Suspect]
     Indication: RHEUMATOID ARTHRITIS
     Dosage: SEE TEXT, PO
     Route: 048
  2. CEFTRIAXONE [Suspect]
     Indication: BRONCHOPNEUMONIA

REACTIONS (9)
  - ANAEMIA MACROCYTIC [None]
  - ANOREXIA [None]
  - ASTHENIA [None]
  - BRONCHOPNEUMONIA [None]
  - DIARRHOEA [None]
  - FOLATE DEFICIENCY [None]
  - GASTRITIS ATROPHIC [None]
  - INTESTINAL VILLI ATROPHY [None]
  - STOMATITIS [None]
